FAERS Safety Report 26218487 (Version 1)
Quarter: 2025Q4

REPORT INFORMATION
  Report Type: Spontaneous
  Country: US (occurrence: US)
  Receive Date: 20251231
  Receipt Date: 20251231
  Transmission Date: 20260118
  Serious: No
  Sender: MYLAN
  Company Number: US-MYLANLABS-2025M1105485

PATIENT
  Sex: Female

DRUGS (3)
  1. TYRVAYA [Suspect]
     Active Substance: VARENICLINE TARTRATE
     Indication: Product used for unknown indication
     Dosage: UNK
  2. OCUVITE [Suspect]
     Active Substance: VITAMINS
     Dosage: UNK
  3. TRYPTYR [Suspect]
     Active Substance: ACOLTREMON
     Dosage: UNK

REACTIONS (1)
  - Pain [Unknown]
